FAERS Safety Report 19393569 (Version 1)
Quarter: 2021Q2

REPORT INFORMATION
  Report Type: Spontaneous
  Country: US (occurrence: US)
  Receive Date: 20210608
  Receipt Date: 20210608
  Transmission Date: 20210717
  Serious: Yes (Hospitalization)
  Sender: FDA-Public Use
  Company Number: None

PATIENT
  Age: 48 Year
  Sex: Male

DRUGS (5)
  1. REBIF [Suspect]
     Active Substance: INTERFERON BETA-1A
     Indication: MULTIPLE SCLEROSIS
     Dosage: ?          OTHER FREQUENCY:THREE TIMES A WEEK;?
     Route: 058
     Dates: start: 20160328
  2. ALEVE [Concomitant]
     Active Substance: NAPROXEN SODIUM
  3. LYRICA [Concomitant]
     Active Substance: PREGABALIN
  4. OXYCODONE [Concomitant]
     Active Substance: OXYCODONE
  5. ADVIL [Concomitant]
     Active Substance: IBUPROFEN

REACTIONS (2)
  - Therapy interrupted [None]
  - Hospitalisation [None]

NARRATIVE: CASE EVENT DATE: 20210603
